FAERS Safety Report 7377305-8 (Version None)
Quarter: 2011Q1

REPORT INFORMATION
  Report Type: 
  Country: None (occurrence: None)
  Receive Date: 20110316
  Receipt Date: 20110307
  Transmission Date: 20110831
  Serious: Yes (Life-Threatening, Hospitalization)
  Sender: FDA-Public Use
  Company Number: 2011SP007853

PATIENT
  Age: 29 Year
  Sex: Female

DRUGS (1)
  1. NUVARING [Suspect]
     Indication: CONTRACEPTION
     Dosage: QM
     Dates: start: 20060101, end: 20101113

REACTIONS (4)
  - VENOUS INSUFFICIENCY [None]
  - BACK PAIN [None]
  - PELVIC VENOUS THROMBOSIS [None]
  - RADICULOPATHY [None]
